FAERS Safety Report 7050000-0 (Version None)
Quarter: 2010Q4

REPORT INFORMATION
  Report Type: 
  Country: None (occurrence: None)
  Receive Date: 20101018
  Receipt Date: 20101011
  Transmission Date: 20110411
  Serious: Yes (Other)
  Sender: FDA-Public Use
  Company Number: US-JNJFOC-20100904803

PATIENT
  Age: 68 Year
  Sex: Male
  Weight: 83.92 kg

DRUGS (4)
  1. ST. JOSEPH ENTERIC COATED [Suspect]
     Indication: CARDIAC DISORDER
     Route: 048
  2. LIPITOR [Concomitant]
     Indication: BLOOD CHOLESTEROL
     Route: 065
  3. VASOTEC [Concomitant]
     Indication: HYPERTENSION
     Route: 065
  4. NORVASC [Concomitant]
     Indication: HYPERTENSION
     Route: 065

REACTIONS (1)
  - TINNITUS [None]
